FAERS Safety Report 16040280 (Version 4)
Quarter: 2021Q3

REPORT INFORMATION
  Report Type: Other
  Country: US (occurrence: US)
  Receive Date: 20190306
  Receipt Date: 20210913
  Transmission Date: 20211014
  Serious: Yes (Other)
  Sender: FDA-Public Use
  Company Number: US-ROCHE-2277083

PATIENT

DRUGS (2)
  1. GUADECITABINE [Suspect]
     Active Substance: GUADECITABINE
     Indication: LEUKAEMIA
     Dosage: DOSE LEVEL 1?DAYS 1?5
     Route: 058
  2. ATEZOLIZUMAB. [Suspect]
     Active Substance: ATEZOLIZUMAB
     Indication: LEUKAEMIA
     Dosage: DAYS 8 AND 22
     Route: 042

REACTIONS (5)
  - Thrombocytopenia [Unknown]
  - Pneumonitis [Unknown]
  - Leukopenia [Unknown]
  - Neutropenia [Unknown]
  - Encephalitis [Unknown]
